FAERS Safety Report 25129741 (Version 4)
Quarter: 2025Q2

REPORT INFORMATION
  Report Type: Spontaneous
  Country: US (occurrence: US)
  Receive Date: 20250327
  Receipt Date: 20250519
  Transmission Date: 20250716
  Serious: Yes (Other)
  Sender: PFIZER
  Company Number: US-PFIZER INC-202500044758

PATIENT
  Age: 60 Year
  Sex: Male

DRUGS (3)
  1. TUKYSA [Suspect]
     Active Substance: TUCATINIB
     Indication: Human epidermal growth factor receptor positive
     Dosage: 150 MG, 2 TABLETS TWICE DAILY, TAKE WITH OR WITHOUT FOOD/ 300 MG TWICE DAILY
     Route: 048
  2. DOXYCYCLINE [Concomitant]
     Active Substance: DOXYCYCLINE
  3. XELODA [Concomitant]
     Active Substance: CAPECITABINE
     Dates: start: 20240425

REACTIONS (6)
  - Blood pressure increased [Unknown]
  - Malignant neoplasm progression [Unknown]
  - Cardiac disorder [Unknown]
  - Malaise [Unknown]
  - Off label use [Unknown]
  - Product use issue [Unknown]
